FAERS Safety Report 23319327 (Version 1)
Quarter: 2023Q4

REPORT INFORMATION
  Report Type: Spontaneous
  Country: CN (occurrence: CN)
  Receive Date: 20231220
  Receipt Date: 20231220
  Transmission Date: 20240110
  Serious: Yes (Hospitalization, Other)
  Sender: FDA-Public Use
  Company Number: None

PATIENT
  Age: 60 Year
  Sex: Female
  Weight: 47 kg

DRUGS (2)
  1. CYCLOPHOSPHAMIDE [Suspect]
     Active Substance: CYCLOPHOSPHAMIDE
     Indication: Neoplasm malignant
     Dosage: 0.8 G, ONE TIME IN ONE DAY, DILUTED WITH 30 ML OF 0.9 % SODIUM CHLORIDE, AT 15:16
     Route: 041
     Dates: start: 20231130, end: 20231130
  2. SODIUM CHLORIDE [Suspect]
     Active Substance: SODIUM CHLORIDE
     Indication: Medication dilution
     Dosage: 0.9% 30 ML, ONE TIME IN ONE DAY, USED TO DILUTE 0.8 G OF CYCLOPHOSPHAMIDE, AT 15:16
     Route: 041
     Dates: start: 20231130, end: 20231130

REACTIONS (2)
  - Hepatic function abnormal [Recovering/Resolving]
  - Discomfort [Unknown]

NARRATIVE: CASE EVENT DATE: 20231203
